FAERS Safety Report 17198158 (Version 3)
Quarter: 2020Q2

REPORT INFORMATION
  Report Type: Report from Study
  Country: None (occurrence: US)
  Receive Date: 20191225
  Receipt Date: 20200612
  Transmission Date: 20200713
  Serious: Yes (Hospitalization, Other)
  Sender: FDA-Public Use
  Company Number: US-ABBVIE-19K-163-2901190-00

PATIENT
  Age: 40 Year
  Sex: Female

DRUGS (2)
  1. HUMIRA [Suspect]
     Active Substance: ADALIMUMAB
     Indication: CROHN^S DISEASE
  2. HUMIRA [Suspect]
     Active Substance: ADALIMUMAB
     Indication: HIDRADENITIS
     Dosage: CITRATE FREE
     Route: 058

REACTIONS (9)
  - Abscess rupture [Recovering/Resolving]
  - Abscess [Recovering/Resolving]
  - Cyst [Recovering/Resolving]
  - Ostomy bag placement [Recovered/Resolved]
  - Intentional product misuse [Unknown]
  - Sepsis [Recovered/Resolved]
  - Drug ineffective [Unknown]
  - Cellulitis [Recovered/Resolved]
  - Arthropod bite [Unknown]

NARRATIVE: CASE EVENT DATE: 201911
